FAERS Safety Report 14200116 (Version 1)
Quarter: 2017Q4

REPORT INFORMATION
  Report Type: Spontaneous
  Country: US (occurrence: US)
  Receive Date: 20171117
  Receipt Date: 20171117
  Transmission Date: 20180321
  Serious: Yes (Other)
  Sender: FDA-Public Use
  Company Number: US-AMGEN-USASP2017170583

PATIENT
  Age: 64 Year
  Sex: Female

DRUGS (1)
  1. REPATHA [Suspect]
     Active Substance: EVOLOCUMAB
     Indication: BLOOD CHOLESTEROL INCREASED
     Dosage: UNK
     Route: 065
     Dates: start: 2016

REACTIONS (10)
  - Throat irritation [Unknown]
  - Dry eye [Unknown]
  - Ear infection [Unknown]
  - Injection site pain [Unknown]
  - Influenza like illness [Unknown]
  - Nasal dryness [Unknown]
  - Ear pruritus [Unknown]
  - Dry throat [Unknown]
  - Glaucoma [Unknown]
  - Cough [Unknown]
